FAERS Safety Report 19583459 (Version 3)
Quarter: 2024Q1

REPORT INFORMATION
  Report Type: Spontaneous
  Country: US (occurrence: US)
  Receive Date: 20210720
  Receipt Date: 20240328
  Transmission Date: 20240410
  Serious: Yes (Other)
  Sender: FDA-Public Use
  Company Number: US-ENDO PHARMACEUTICALS INC-2021-005365

PATIENT
  Age: 37 Year
  Sex: Female

DRUGS (3)
  1. RANITIDINE HYDROCHLORIDE [Suspect]
     Active Substance: RANITIDINE HYDROCHLORIDE
     Indication: Gastrooesophageal reflux disease
     Dosage: 300 MG, DAILY
     Route: 065
     Dates: start: 20050101, end: 20170101
  2. RANITIDINE [Suspect]
     Active Substance: RANITIDINE
     Indication: Gastrooesophageal reflux disease
     Dosage: 300 MG, DAILY
     Route: 065
     Dates: start: 20050101, end: 20170101
  3. ZANTAC [Suspect]
     Active Substance: RANITIDINE HYDROCHLORIDE
     Indication: Product used for unknown indication
     Dosage: UNK UNKNOWN, UNKNOWN
     Route: 065
     Dates: start: 20050101, end: 20170101

REACTIONS (2)
  - Oesophageal carcinoma [Recovering/Resolving]
  - Gastric cancer stage I [Recovering/Resolving]

NARRATIVE: CASE EVENT DATE: 20170101
